FAERS Safety Report 18598758 (Version 2)
Quarter: 2020Q4

REPORT INFORMATION
  Report Type: Report from Study
  Country: NL (occurrence: NL)
  Receive Date: 20201210
  Receipt Date: 20201225
  Transmission Date: 20210114
  Serious: Yes (Other)
  Sender: FDA-Public Use
  Company Number: NL-AUROBINDO-AUR-APL-2020-059981

PATIENT
  Age: 65 Year
  Sex: Male

DRUGS (2)
  1. SILDENAFIL. [Suspect]
     Active Substance: SILDENAFIL
     Indication: PULMONARY HYPERTENSION
     Dosage: 20 MILLIGRAM, 3 TIMES A DAY
     Route: 065
  2. MACITENTAN [Suspect]
     Active Substance: MACITENTAN
     Indication: PULMONARY HYPERTENSION
     Dosage: 10 MILLIGRAM, ONCE A DAY
     Route: 065

REACTIONS (4)
  - Off label use [Unknown]
  - Myalgia [Unknown]
  - Drug ineffective [Unknown]
  - Fatigue [Unknown]
